FAERS Safety Report 10335617 (Version 1)
Quarter: 2014Q3

REPORT INFORMATION
  Report Type: Spontaneous
  Country: CA (occurrence: CA)
  Receive Date: 20140723
  Receipt Date: 20140723
  Transmission Date: 20150326
  Serious: Yes (Disabling)
  Sender: FDA-Public Use
  Company Number: CA-TEVA-496190USA

PATIENT
  Age: 77 Year
  Sex: Female
  Weight: 64.92 kg

DRUGS (4)
  1. ELTROXIN [Concomitant]
     Active Substance: LEVOTHYROXINE
  2. EZETROL [Concomitant]
     Active Substance: EZETIMIBE
  3. ZOCOR [Concomitant]
     Active Substance: SIMVASTATIN
  4. IRBESARTAN. [Suspect]
     Active Substance: IRBESARTAN
     Indication: PRODUCT USED FOR UNKNOWN INDICATION
     Route: 048

REACTIONS (4)
  - Retching [Unknown]
  - Product substitution issue [Unknown]
  - Nausea [Unknown]
  - Abdominal discomfort [Unknown]
